FAERS Safety Report 8302629 (Version 5)
Quarter: 2013Q3

REPORT INFORMATION
  Report Type: Spontaneous
  Country: AU (occurrence: AU)
  Receive Date: 20111220
  Receipt Date: 20130917
  Transmission Date: 20140515
  Serious: Yes (Hospitalization, Other)
  Sender: FDA-Public Use
  Company Number: AU-BRISTOL-MYERS SQUIBB COMPANY-16290405

PATIENT
  Age: 50 Year
  Sex: Female

DRUGS (1)
  1. YERVOY [Suspect]
     Indication: METASTATIC MALIGNANT MELANOMA
     Dosage: CYCLE 3 INFUSION ON 12 DECEMBER 2011?LAST INF:21NOV2011?3MG/KG
     Route: 042
     Dates: start: 20111031

REACTIONS (6)
  - Diarrhoea [Recovered/Resolved]
  - Abdominal tenderness [Unknown]
  - Dehydration [Unknown]
  - Tachycardia [Unknown]
  - Liver function test abnormal [Recovering/Resolving]
  - Nausea [Unknown]
